FAERS Safety Report 10492457 (Version 1)
Quarter: 2014Q4

REPORT INFORMATION
  Report Type: Spontaneous
  Country: US (occurrence: US)
  Receive Date: 20141002
  Receipt Date: 20141002
  Transmission Date: 20150528
  Serious: No
  Sender: FDA-Public Use
  Company Number: US-GLAXOSMITHKLINE-A1071231A

PATIENT
  Sex: Male

DRUGS (14)
  1. DIOVAN [Concomitant]
     Active Substance: VALSARTAN
  2. SPIRIVA [Concomitant]
     Active Substance: TIOTROPIUM BROMIDE MONOHYDRATE
  3. SIMVASTATIN. [Concomitant]
     Active Substance: SIMVASTATIN
  4. QNASL [Concomitant]
     Active Substance: BECLOMETHASONE DIPROPIONATE
  5. MONTELUKAST [Concomitant]
     Active Substance: MONTELUKAST SODIUM
  6. PRILOSEC [Concomitant]
     Active Substance: OMEPRAZOLE MAGNESIUM
  7. ADVAIR HFA [Suspect]
     Active Substance: FLUTICASONE PROPIONATE\SALMETEROL XINAFOATE
     Indication: CHRONIC OBSTRUCTIVE PULMONARY DISEASE
     Dosage: 1PUFF TWICE PER DAY
     Route: 055
  8. AZELASTINE [Concomitant]
     Active Substance: AZELASTINE
  9. VENTOLIN [Concomitant]
     Active Substance: ALBUTEROL SULFATE
  10. NASONEX [Concomitant]
     Active Substance: MOMETASONE FUROATE
  11. CETIRIZINE [Concomitant]
     Active Substance: CETIRIZINE HYDROCHLORIDE
  12. ALBUTEROL NEBULIZER [Concomitant]
     Active Substance: ALBUTEROL
  13. DALIRESP [Concomitant]
     Active Substance: ROFLUMILAST
  14. NASAL SPRAY [Concomitant]
     Active Substance: UNSPECIFIED INGREDIENT

REACTIONS (1)
  - Memory impairment [Unknown]
